FAERS Safety Report 7544256-5 (Version None)
Quarter: 2011Q2

REPORT INFORMATION
  Report Type: 
  Country: None (occurrence: None)
  Receive Date: 20110613
  Receipt Date: 20070830
  Transmission Date: 20111010
  Serious: Yes (Other)
  Sender: FDA-Public Use
  Company Number: PHMT2007CA01622

PATIENT
  Sex: Male

DRUGS (4)
  1. SANDOSTATIN LAR [Suspect]
     Dosage: 20 MG EVERY 4 WEEKS
     Route: 030
     Dates: start: 20060912
  2. ZOPICLONE [Concomitant]
     Dosage: 7.5 MG AT HS
  3. SANDOSTATIN LAR [Suspect]
     Dosage: 30 MG EVERY 4 WEEKS
     Route: 030
  4. PAXIL [Concomitant]
     Dosage: 12.5 MG/DAILY

REACTIONS (13)
  - DEPRESSED MOOD [None]
  - BLOOD GROWTH HORMONE INCREASED [None]
  - OEDEMA PERIPHERAL [None]
  - PAIN IN EXTREMITY [None]
  - INSOMNIA [None]
  - POLYURIA [None]
  - HYPERHIDROSIS [None]
  - ANXIETY [None]
  - POLYDIPSIA [None]
  - MALAISE [None]
  - HEADACHE [None]
  - BLOOD PRESSURE INCREASED [None]
  - SKIN HYPERTROPHY [None]
